FAERS Safety Report 20459753 (Version 1)
Quarter: 2022Q1

REPORT INFORMATION
  Report Type: Other
  Country: CA (occurrence: None)
  Receive Date: 20220211
  Receipt Date: 20220211
  Transmission Date: 20220423
  Serious: Yes (Other)
  Sender: FDA-Public Use
  Company Number: CA-ROCHE-3016620

PATIENT

DRUGS (4)
  1. ATEZOLIZUMAB [Suspect]
     Active Substance: ATEZOLIZUMAB
     Indication: Non-small cell lung cancer
     Route: 065
  2. NIVOLUMAB [Suspect]
     Active Substance: NIVOLUMAB
     Indication: Non-small cell lung cancer
     Route: 065
  3. PEMBROLIZUMAB [Suspect]
     Active Substance: PEMBROLIZUMAB
     Indication: Non-small cell lung cancer
     Route: 065
  4. DURVALUMAB [Suspect]
     Active Substance: DURVALUMAB
     Indication: Non-small cell lung cancer
     Route: 065

REACTIONS (13)
  - Encephalitis [Unknown]
  - Thrombocytopenia [Unknown]
  - Pneumonitis [Unknown]
  - Hepatitis [Unknown]
  - Pericardial effusion [Unknown]
  - Hypothyroidism [Unknown]
  - Arthritis [Unknown]
  - Colitis [Unknown]
  - Pyrexia [Unknown]
  - Nausea [Unknown]
  - Dermatitis [Unknown]
  - Oesophagitis [Unknown]
  - Ill-defined disorder [Unknown]
